FAERS Safety Report 8987080 (Version 2)
Quarter: 2014Q2

REPORT INFORMATION
  Report Type: Spontaneous
  Country: US (occurrence: US)
  Receive Date: 20121227
  Receipt Date: 20140521
  Transmission Date: 20141212
  Serious: Yes (Hospitalization, Other)
  Sender: FDA-Public Use
  Company Number: US-AMGEN-USASP2012083211

PATIENT
  Age: 49 Year
  Sex: Male

DRUGS (3)
  1. ENBREL [Suspect]
     Indication: PSORIATIC ARTHROPATHY
     Dosage: UNK UNK, QWK
     Route: 065
     Dates: start: 20090813, end: 201111
  2. METHOTREXATE [Concomitant]
     Dosage: UNK
     Dates: start: 2009, end: 2010
  3. REMICADE [Concomitant]
     Dosage: UNK
     Dates: end: 2013

REACTIONS (10)
  - Gastrointestinal haemorrhage [Recovered/Resolved]
  - Benign pancreatic neoplasm [Recovered/Resolved]
  - Skin discolouration [Not Recovered/Not Resolved]
  - Vomiting [Recovered/Resolved]
  - Haemorrhage [Not Recovered/Not Resolved]
  - Gait disturbance [Not Recovered/Not Resolved]
  - Skin plaque [Not Recovered/Not Resolved]
  - Foot deformity [Not Recovered/Not Resolved]
  - Dysstasia [Not Recovered/Not Resolved]
  - Injection site pain [Recovered/Resolved]
